FAERS Safety Report 24921718 (Version 1)
Quarter: 2025Q1

REPORT INFORMATION
  Report Type: Spontaneous
  Country: AU (occurrence: AU)
  Receive Date: 20250204
  Receipt Date: 20250204
  Transmission Date: 20250409
  Serious: Yes (Hospitalization, Other)
  Sender: MYLAN
  Company Number: AU-MYLANLABS-2025M1008841

PATIENT
  Sex: Male

DRUGS (18)
  1. CISPLATIN [Suspect]
     Active Substance: CISPLATIN
     Indication: Pleural mesothelioma malignant
     Route: 065
  2. PEMETREXED [Suspect]
     Active Substance: PEMETREXED
     Indication: Pleural mesothelioma malignant
     Route: 065
  3. ACETAMINOPHEN [Suspect]
     Active Substance: ACETAMINOPHEN
     Indication: Cancer pain
     Dosage: 1 GRAM, QID
     Route: 065
  4. PARECOXIB SODIUM [Suspect]
     Active Substance: PARECOXIB SODIUM
     Indication: Cancer pain
     Dosage: 40 MILLIGRAM, QD
     Route: 065
  5. KETAMINE [Suspect]
     Active Substance: KETAMINE
     Indication: Cancer pain
     Route: 065
  6. OXYCODONE [Suspect]
     Active Substance: OXYCODONE
     Indication: Cancer pain
     Dosage: 100 MILLIGRAM, BID (MODIFIED RELEASE)
     Route: 065
  7. OXYCODONE [Suspect]
     Active Substance: OXYCODONE
     Route: 065
  8. MORPHINE [Suspect]
     Active Substance: MORPHINE
     Indication: Cancer pain
     Dosage: 150 MILLIGRAM, BID (MODIFIED RELEASE)
     Route: 065
  9. MORPHINE [Suspect]
     Active Substance: MORPHINE
     Route: 065
  10. FENTANYL [Suspect]
     Active Substance: FENTANYL
     Indication: Cancer pain
     Dosage: 100 MICROGRAM, QH
     Route: 062
  11. FENTANYL [Suspect]
     Active Substance: FENTANYL
     Route: 062
  12. PREGABALIN [Suspect]
     Active Substance: PREGABALIN
     Indication: Cancer pain
     Dosage: 150 MILLIGRAM, BID
     Route: 065
  13. PREGABALIN [Suspect]
     Active Substance: PREGABALIN
     Route: 065
  14. GABAPENTIN [Suspect]
     Active Substance: GABAPENTIN
     Indication: Cancer pain
     Dosage: 300 MILLIGRAM, TID
     Route: 065
  15. GABAPENTIN [Suspect]
     Active Substance: GABAPENTIN
     Route: 065
  16. NIVOLUMAB [Suspect]
     Active Substance: NIVOLUMAB
     Indication: Pleural mesothelioma malignant
     Route: 065
  17. IPILIMUMAB [Suspect]
     Active Substance: IPILIMUMAB
     Indication: Pleural mesothelioma malignant
     Route: 065
  18. LIDOCAINE [Suspect]
     Active Substance: LIDOCAINE
     Indication: Cancer pain
     Dosage: UNK UNK, QD
     Route: 062

REACTIONS (5)
  - Drug ineffective [Unknown]
  - Cognitive disorder [Unknown]
  - Nervous system disorder [Unknown]
  - Disease progression [Unknown]
  - Drug intolerance [Unknown]
